FAERS Safety Report 14914161 (Version 2)
Quarter: 2019Q1

REPORT INFORMATION
  Report Type: Report from Study
  Country: US (occurrence: US)
  Receive Date: 20180518
  Receipt Date: 20190130
  Transmission Date: 20190417
  Serious: Yes (Hospitalization)
  Sender: FDA-Public Use
  Company Number: US-PFIZER INC-2018201324

PATIENT
  Age: 2 Year
  Sex: Female
  Weight: 10 kg

DRUGS (14)
  1. NORMAL SALINE SOLUTION [Concomitant]
     Indication: PROPHYLAXIS
     Dosage: 100 ML, UNK
     Route: 042
     Dates: start: 20180225, end: 20180227
  2. NORMAL SALINE SOLUTION [Concomitant]
     Dosage: 7.12 MG, 1 IN 1 D
     Route: 037
     Dates: start: 20180316, end: 20180316
  3. VENETOCLAX. [Suspect]
     Active Substance: VENETOCLAX
     Indication: NEOPLASM MALIGNANT
     Dosage: 40 MG,1 IN 1 D
     Route: 045
     Dates: start: 20180224, end: 20180224
  4. ALLOPURINOL. [Concomitant]
     Active Substance: ALLOPURINOL
     Indication: PROPHYLAXIS
     Dosage: 50 MG, UNK
     Dates: start: 20180223, end: 20180304
  5. VINCRISTINE SULFATE. [Suspect]
     Active Substance: VINCRISTINE SULFATE
     Indication: NEOPLASM MALIGNANT
     Dosage: 2 MG/M2,1 IN 1 WK
     Route: 042
     Dates: start: 20180303, end: 20180310
  6. VENETOCLAX. [Suspect]
     Active Substance: VENETOCLAX
     Dosage: 35 MG,1 IN 1 D
     Route: 045
     Dates: start: 20180225, end: 20180225
  7. PEG/L-ASPARAGINASE [Suspect]
     Active Substance: PEGASPARGASE
     Indication: NEOPLASM MALIGNANT
     Dosage: 2500 IU/M2 (1 IN 2 WK)
     Route: 042
     Dates: start: 20180303, end: 20180303
  8. HYDROCORTISONE. [Concomitant]
     Active Substance: HYDROCORTISONE
     Indication: BLAST CELL COUNT DECREASED
     Dosage: 16 MG, 1 IN 1 D
     Route: 037
     Dates: start: 20180316, end: 20180316
  9. CYTARABINE. [Suspect]
     Active Substance: CYTARABINE
     Indication: NEOPLASM MALIGNANT
     Dosage: GIVEN IN COMBINATION WITH METHOTREXATE, HYDROCORTISONE (50 MG/M2)
     Route: 042
     Dates: start: 20180316
  10. VENETOCLAX. [Suspect]
     Active Substance: VENETOCLAX
     Dosage: 150 MG,1 IN 1 D
     Route: 045
     Dates: start: 20180226, end: 20180310
  11. VENETOCLAX. [Suspect]
     Active Substance: VENETOCLAX
     Dosage: 150 MG,1 IN 1 D
     Route: 045
     Dates: start: 20180323
  12. VANCOMYCIN [Concomitant]
     Active Substance: VANCOMYCIN
     Indication: FEBRILE NEUTROPENIA
     Route: 042
  13. METHOTREXATE. [Concomitant]
     Active Substance: METHOTREXATE
     Indication: ACUTE LYMPHOCYTIC LEUKAEMIA
     Dosage: UNK
     Dates: start: 20161010, end: 20170213
  14. METHOTREXATE. [Concomitant]
     Active Substance: METHOTREXATE
     Indication: BLAST CELL COUNT DECREASED
     Dosage: 8 MG, 1 IN 1 D
     Route: 037
     Dates: start: 20180316, end: 20180316

REACTIONS (1)
  - Febrile neutropenia [Recovered/Resolved]

NARRATIVE: CASE EVENT DATE: 20180319
